FAERS Safety Report 21499801 (Version 3)
Quarter: 2024Q1

REPORT INFORMATION
  Report Type: Spontaneous
  Country: US (occurrence: US)
  Receive Date: 20221024
  Receipt Date: 20240110
  Transmission Date: 20240409
  Serious: Yes (Other)
  Sender: FDA-Public Use
  Company Number: US-PFIZER INC-202201249148

PATIENT
  Age: 79 Year
  Sex: Female
  Weight: 63.5 kg

DRUGS (4)
  1. IBRANCE [Suspect]
     Active Substance: PALBOCICLIB
     Indication: Breast cancer female
     Dosage: 125 MG, ONCE A DAY THREE WEEKS, ONE WEEK OFF
     Route: 048
     Dates: end: 202311
  2. LATANOPROST [Concomitant]
     Active Substance: LATANOPROST
     Indication: Glaucoma
  3. FASLODEX [Concomitant]
     Active Substance: FULVESTRANT
     Dosage: TWO INJECTION EACH MONTH
  4. ZOMETA [Concomitant]
     Active Substance: ZOLEDRONIC ACID
     Dosage: INFUSION EVERY SIX MONTHS

REACTIONS (3)
  - Cardiac valve disease [Unknown]
  - Alopecia [Unknown]
  - White blood cell count decreased [Unknown]
